FAERS Safety Report 4368158-0 (Version None)
Quarter: 2004Q2

REPORT INFORMATION
  Report Type: 
  Country: None (occurrence: None)
  Receive Date: 20040602
  Receipt Date: 20040521
  Transmission Date: 20050107
  Serious: Yes (Other)
  Sender: FDA-Public Use
  Company Number: PHEH2004US05745

PATIENT
  Age: 64 Year
  Sex: Male
  Weight: 125 kg

DRUGS (10)
  1. DIOVAN HCT [Suspect]
     Indication: HYPERTENSION
     Dosage: 160 MG/UNK MG TWICE DAILY
     Route: 048
     Dates: start: 19990101, end: 20030609
  2. DIOVAN HCT [Suspect]
     Dosage: 80 MG/UNK MG DAILY
     Route: 048
     Dates: start: 19990101
  3. NORVASK [Concomitant]
  4. CITRACAL [Concomitant]
  5. ZOCOR [Concomitant]
  6. PLAVIX [Concomitant]
  7. ASPIRIN [Concomitant]
  8. COMBINATIONS OF VITAMINS (A, C, E) [Concomitant]
  9. COQ10 [Concomitant]
  10. GLUCOSAMINE [Concomitant]

REACTIONS (12)
  - BLOOD PRESSURE INCREASED [None]
  - COLON CANCER [None]
  - DIABETES MELLITUS NON-INSULIN-DEPENDENT [None]
  - DRUG INEFFECTIVE [None]
  - GASTROOESOPHAGEAL REFLUX DISEASE [None]
  - HYPERHIDROSIS [None]
  - MYOCARDIAL INFARCTION [None]
  - NAUSEA [None]
  - SOMNOLENCE [None]
  - STENT PLACEMENT [None]
  - SURGERY [None]
  - VISUAL FIELD DEFECT [None]
